FAERS Safety Report 24373326 (Version 5)
Quarter: 2025Q1

REPORT INFORMATION
  Report Type: Report from Study
  Country: IN (occurrence: IN)
  Receive Date: 20240927
  Receipt Date: 20250108
  Transmission Date: 20250408
  Serious: Yes (Other)
  Sender: INCYTE
  Company Number: IN-002147023-NVSC2024IN042787

PATIENT

DRUGS (5)
  1. RUXOLITINIB [Suspect]
     Active Substance: RUXOLITINIB
     Indication: Graft versus host disease
     Dosage: 10 MG, BID
     Route: 048
     Dates: start: 20231120
  2. RUXOLITINIB [Suspect]
     Active Substance: RUXOLITINIB
     Dosage: 5 MG, BID
     Route: 048
  3. IBRUTINIB [Concomitant]
     Active Substance: IBRUTINIB
     Indication: Product used for unknown indication
     Route: 048
  4. IBRUTINIB [Concomitant]
     Active Substance: IBRUTINIB
     Route: 042
  5. ITRACONAZOLE [Concomitant]
     Active Substance: ITRACONAZOLE
     Indication: Antifungal treatment
     Route: 065

REACTIONS (16)
  - BK polyomavirus test positive [Recovered/Resolved]
  - Aspiration bone marrow [Unknown]
  - Diabetes mellitus [Unknown]
  - Dyspnoea [Not Recovered/Not Resolved]
  - Visual impairment [Unknown]
  - Dry eye [Unknown]
  - Pseudomonas infection [Recovering/Resolving]
  - Lower respiratory tract infection bacterial [Recovering/Resolving]
  - Hypertension [Unknown]
  - Hyperthyroidism [Unknown]
  - Hypothyroidism [Recovered/Resolved]
  - Pulmonary function test abnormal [Recovered/Resolved]
  - Malaise [Unknown]
  - Tension [Unknown]
  - Anxiety [Unknown]
  - Aphasia [Unknown]
